FAERS Safety Report 19087842 (Version 2)
Quarter: 2021Q2

REPORT INFORMATION
  Report Type: Report from Study
  Country: NL (occurrence: NL)
  Receive Date: 20210402
  Receipt Date: 20210513
  Transmission Date: 20210717
  Serious: Yes (Other)
  Sender: FDA-Public Use
  Company Number: NL-TEVA-2021-NL-1895030

PATIENT
  Age: 30 Year
  Sex: Female

DRUGS (1)
  1. COPAXONE [Suspect]
     Active Substance: GLATIRAMER ACETATE
     Indication: MULTIPLE SCLEROSIS
     Dosage: 40 MG/ML; 3 TIMES IN 1 WEEK
     Route: 058
     Dates: start: 20171128

REACTIONS (2)
  - Cervical dysplasia [Recovering/Resolving]
  - Heart rate decreased [Recovering/Resolving]

NARRATIVE: CASE EVENT DATE: 2020
